FAERS Safety Report 20091357 (Version 1)
Quarter: 2021Q4

REPORT INFORMATION
  Report Type: Spontaneous
  Country: AU (occurrence: AU)
  Receive Date: 20211119
  Receipt Date: 20211119
  Transmission Date: 20220303
  Serious: Yes (Life-Threatening, Hospitalization)
  Sender: FDA-Public Use
  Company Number: AU-MYLANLABS-2021M1085317

PATIENT
  Age: 5 Decade
  Sex: Female

DRUGS (10)
  1. NOREPINEPHRINE [Suspect]
     Active Substance: NOREPINEPHRINE
     Indication: Cardiogenic shock
     Dosage: INITIAL DOSE NOT STATED; LATER REQUIRED ABOVE 0.57 MICROG/KG/MIN
     Route: 065
  2. NOREPINEPHRINE [Suspect]
     Active Substance: NOREPINEPHRINE
     Indication: Vasoplegia syndrome
  3. NOREPINEPHRINE [Suspect]
     Active Substance: NOREPINEPHRINE
     Indication: Toxic shock syndrome streptococcal
  4. MILRINONE [Suspect]
     Active Substance: MILRINONE
     Indication: Toxic shock syndrome streptococcal
     Dosage: 0.24 MICROGRAM/KILOGRAM, QMINUTE
     Route: 065
  5. MILRINONE [Suspect]
     Active Substance: MILRINONE
     Indication: Cardiogenic shock
  6. MILRINONE [Suspect]
     Active Substance: MILRINONE
     Indication: Vasoplegia syndrome
  7. VASOPRESSIN [Suspect]
     Active Substance: VASOPRESSIN
     Indication: Toxic shock syndrome streptococcal
     Dosage: 0.04 UNITS/MIN
     Route: 065
  8. VASOPRESSIN [Suspect]
     Active Substance: VASOPRESSIN
     Indication: Cardiogenic shock
  9. VASOPRESSIN [Suspect]
     Active Substance: VASOPRESSIN
     Indication: Vasoplegia syndrome
  10. PIPERACILLIN SODIUM\TAZOBACTAM SODIUM [Concomitant]
     Active Substance: PIPERACILLIN SODIUM\TAZOBACTAM SODIUM
     Indication: Evidence based treatment
     Dosage: UNK UNK, Q6H
     Route: 065

REACTIONS (1)
  - Drug ineffective [Unknown]
